FAERS Safety Report 24737886 (Version 1)
Quarter: 2024Q4

REPORT INFORMATION
  Report Type: Spontaneous
  Country: CA (occurrence: CA)
  Receive Date: 20241216
  Receipt Date: 20241216
  Transmission Date: 20250115
  Serious: Yes (Hospitalization)
  Sender: NOVARTIS
  Company Number: CA-SANDOZ-SDZ2024CA049158

PATIENT
  Age: 52 Year
  Sex: Female

DRUGS (30)
  1. ABACAVIR SULFATE [Interacting]
     Active Substance: ABACAVIR SULFATE
     Indication: Product used for unknown indication
     Dosage: UNK
     Route: 065
  2. OLANZAPINE [Interacting]
     Active Substance: OLANZAPINE
     Indication: Product used for unknown indication
     Dosage: 5 MG, QD (1 EVERY 1 DAYS)
     Route: 048
  3. OLANZAPINE [Interacting]
     Active Substance: OLANZAPINE
     Dosage: 12.5 MG, QD (1 EVERY 1 DAYS)
     Route: 048
  4. QUETIAPINE [Interacting]
     Active Substance: QUETIAPINE
     Indication: Psychotic disorder
     Dosage: 50 MG, QD (1 EVERY 1 DAYS)
     Route: 065
  5. RISPERIDONE [Interacting]
     Active Substance: RISPERIDONE
     Indication: Psychotic disorder
     Dosage: 3 MG, QD (1 EVERY 1 DAYS)
     Route: 048
  6. ACETAMINOPHEN [Interacting]
     Active Substance: ACETAMINOPHEN
     Indication: Pain in extremity
     Dosage: UNK
     Route: 065
  7. TEGRETOL [Interacting]
     Active Substance: CARBAMAZEPINE
     Indication: Hypomania
     Dosage: 400 MG, QD (200 MG, 2 EVERY 1 DAYS)
     Route: 065
  8. ABACAVIR [Suspect]
     Active Substance: ABACAVIR
     Indication: Product used for unknown indication
     Dosage: UNK
     Route: 065
  9. DIAZEPAM [Interacting]
     Active Substance: DIAZEPAM
     Indication: Depression
     Dosage: UNK
     Route: 065
  10. DIAZEPAM [Interacting]
     Active Substance: DIAZEPAM
     Dosage: 1500 MG, QD (1 EVERY 1 DAYS)
     Route: 065
  11. DIAZEPAM [Interacting]
     Active Substance: DIAZEPAM
     Dosage: 500 MG, QD (250 MG, 2 EVERY 1 DAYS)
     Route: 048
  12. APTIVUS [Interacting]
     Active Substance: TIPRANAVIR
     Indication: HIV infection
     Dosage: 500 MG, QD (1 EVERY 1 DAYS)
     Route: 065
  13. CLONAZEPAM [Interacting]
     Active Substance: CLONAZEPAM
     Indication: Hypomania
     Dosage: 3 MG, QD (1 EVERY 1 DAYS)
     Route: 048
  14. PROCYCLIDINE HYDROCHLORIDE [Interacting]
     Active Substance: PROCYCLIDINE HYDROCHLORIDE
     Indication: Prophylaxis
     Dosage: 2.5 MG, QD (1 EVERY 1 DAYS)
     Route: 048
  15. PROCYCLIDINE HYDROCHLORIDE [Interacting]
     Active Substance: PROCYCLIDINE HYDROCHLORIDE
     Indication: Musculoskeletal stiffness
  16. TRAZODONE [Interacting]
     Active Substance: TRAZODONE HYDROCHLORIDE
     Indication: Depression
     Dosage: 50 MG, QD (1 EVERY 1 DAYS)
     Route: 048
  17. DIVALPROEX SODIUM [Interacting]
     Active Substance: DIVALPROEX SODIUM
     Indication: Product used for unknown indication
     Dosage: 2500 MG, QD (1 EVERY 1 DAYS)
     Route: 048
  18. DIVALPROEX SODIUM [Interacting]
     Active Substance: DIVALPROEX SODIUM
     Dosage: UNK
     Route: 065
  19. DIVALPROEX SODIUM [Interacting]
     Active Substance: DIVALPROEX SODIUM
     Dosage: 1500 MG, QD (1 EVERY 1 DAYS)
     Route: 048
  20. LAMIVUDINE [Interacting]
     Active Substance: LAMIVUDINE
     Indication: Product used for unknown indication
     Dosage: UNK
     Route: 065
  21. ATOVAQUONE\PROGUANIL HYDROCHLORIDE [Interacting]
     Active Substance: ATOVAQUONE\PROGUANIL HYDROCHLORIDE
     Indication: Product used for unknown indication
     Dosage: UNK
     Route: 048
  22. CALCIUM CARBONATE [Interacting]
     Active Substance: CALCIUM CARBONATE
     Indication: Product used for unknown indication
     Dosage: UNK
     Route: 065
  23. CHLORAL HYDRATE [Interacting]
     Active Substance: CHLORAL HYDRATE
     Indication: Product used for unknown indication
     Dosage: UNK
     Route: 065
  24. IMODIUM [Interacting]
     Active Substance: LOPERAMIDE HYDROCHLORIDE
     Indication: Product used for unknown indication
     Dosage: UNK
     Route: 065
  25. KALETRA [Interacting]
     Active Substance: LOPINAVIR\RITONAVIR
     Indication: Product used for unknown indication
     Dosage: UNK
     Route: 065
  26. LACTULOSE [Interacting]
     Active Substance: LACTULOSE
     Indication: Product used for unknown indication
     Dosage: UNK
     Route: 048
  27. LITHIUM [Concomitant]
     Active Substance: LITHIUM
     Indication: Product used for unknown indication
     Dosage: UNK
     Route: 065
  28. NYSTATIN [Concomitant]
     Active Substance: NYSTATIN
     Indication: Product used for unknown indication
     Dosage: UNK
     Route: 065
  29. SERTRALINE [Concomitant]
     Active Substance: SERTRALINE HYDROCHLORIDE
     Indication: Product used for unknown indication
     Dosage: UNK
     Route: 065
  30. ENFUVIRTIDE [Concomitant]
     Active Substance: ENFUVIRTIDE
     Indication: Product used for unknown indication
     Dosage: UNK
     Route: 065

REACTIONS (6)
  - Cholelithiasis [Unknown]
  - Nausea [Unknown]
  - Vomiting [Unknown]
  - Pneumonia [Unknown]
  - Schizophrenia [Unknown]
  - Product use in unapproved indication [Unknown]
